FAERS Safety Report 17806531 (Version 1)
Quarter: 2020Q2

REPORT INFORMATION
  Report Type: Spontaneous
  Country: US (occurrence: US)
  Receive Date: 20200519
  Receipt Date: 20200519
  Transmission Date: 20200714
  Serious: Yes (Disabling, Other)
  Sender: FDA-Public Use
  Company Number: None

PATIENT
  Age: 41 Year
  Sex: Female
  Weight: 180 kg

DRUGS (11)
  1. PROTONIX 40 MG IV BID [Concomitant]
  2. DULOXETINE EC 60 MG PO DAILY [Concomitant]
  3. FERROUS SULFATE EC 325 MG PO DAILY [Concomitant]
  4. SUCRALFATE SUSPENSION 1 G PO ACHS [Concomitant]
  5. ZOSYN 3.375 G IV Q6H [Concomitant]
  6. VANCOMYCIN [Suspect]
     Active Substance: VANCOMYCIN
     Indication: SKIN INFECTION
     Route: 042
     Dates: start: 20191113, end: 20191118
  7. NORCO 5/325 MG Q6H PO X 1 [Concomitant]
  8. DILAUDID 0.5 MG IV Q6H IV PRN PAIN SCALE 8-10 [Concomitant]
  9. MICONAZOLE 2% POWDER TOPICALLY BID TO RASH ON RIGHT GROIN AREA [Concomitant]
  10. ZOFRAN 4 MG IV Q6H PRN N/V [Concomitant]
  11. VANCOMYCIN [Suspect]
     Active Substance: VANCOMYCIN
     Indication: SEPSIS
     Route: 042
     Dates: start: 20191113, end: 20191118

REACTIONS (4)
  - Haemodialysis [None]
  - Blood creatinine increased [None]
  - Acute kidney injury [None]
  - Cardio-respiratory arrest [None]

NARRATIVE: CASE EVENT DATE: 20191115
